FAERS Safety Report 16743200 (Version 3)
Quarter: 2019Q3

REPORT INFORMATION
  Report Type: Spontaneous
  Country: US (occurrence: US)
  Receive Date: 20190827
  Receipt Date: 20190910
  Transmission Date: 20191005
  Serious: No
  Sender: FDA-Public Use
  Company Number: US-BIOGEN-2019BI00778772

PATIENT
  Sex: Male

DRUGS (2)
  1. AUBAGIO [Suspect]
     Active Substance: TERIFLUNOMIDE
     Indication: PRODUCT USED FOR UNKNOWN INDICATION
     Route: 065
  2. AVONEX [Suspect]
     Active Substance: INTERFERON BETA-1A
     Indication: MULTIPLE SCLEROSIS
     Route: 065
     Dates: start: 20140416, end: 20181231

REACTIONS (7)
  - Gait disturbance [Unknown]
  - Rash generalised [Unknown]
  - Injury associated with device [Recovered/Resolved]
  - Muscular weakness [Unknown]
  - Device malfunction [Unknown]
  - Diarrhoea [Unknown]
  - Device difficult to use [Unknown]

NARRATIVE: CASE EVENT DATE: 2018
